FAERS Safety Report 5133479-0 (Version None)
Quarter: 2006Q4

REPORT INFORMATION
  Report Type: 
  Country: None (occurrence: None)
  Receive Date: 20061018
  Receipt Date: 20061005
  Transmission Date: 20070319
  Serious: Yes (Other)
  Sender: FDA-Public Use
  Company Number: WAES 0610USA04236

PATIENT
  Sex: Female

DRUGS (1)
  1. DECADRON [Suspect]
     Indication: ATRIOVENTRICULAR BLOCK THIRD DEGREE
     Dosage: 4 MG/DAILY/PO
     Route: 048

REACTIONS (8)
  - ABORTION INDUCED [None]
  - ATRIOVENTRICULAR BLOCK FIRST DEGREE [None]
  - ATRIOVENTRICULAR BLOCK THIRD DEGREE [None]
  - CARDIAC DISORDER [None]
  - DRUG EXPOSURE DURING PREGNANCY [None]
  - FOETAL DISORDER [None]
  - HYDROPS FOETALIS [None]
  - TRICUSPID VALVE INCOMPETENCE [None]
